FAERS Safety Report 9717563 (Version 9)
Quarter: 2014Q2

REPORT INFORMATION
  Report Type: Report from Study
  Country: US (occurrence: US)
  Receive Date: 20131127
  Receipt Date: 20140428
  Transmission Date: 20141212
  Serious: Yes (Hospitalization)
  Sender: FDA-Public Use
  Company Number: US-AMGEN-USACT2013083156

PATIENT
  Age: 32 Year
  Sex: Female
  Weight: 148.4 kg

DRUGS (21)
  1. ETANERCEPT [Suspect]
     Indication: RHEUMATOID ARTHRITIS
     Dosage: 1 ML, QWK
     Route: 065
     Dates: start: 20131010
  2. REUSABLE AUTOINJECTOR [Suspect]
     Indication: RHEUMATOID ARTHRITIS
     Dosage: UNK
     Route: 065
     Dates: start: 20131010, end: 20131121
  3. HYDROCORTISONE [Concomitant]
     Dosage: 0.5 UNK, UNK
     Dates: start: 20131021
  4. RESTASIS [Concomitant]
     Dosage: 1 GTT, BID
     Dates: start: 200904
  5. PLAQUENIL                          /00072602/ [Concomitant]
     Dosage: 200 MG, QD
     Route: 048
     Dates: start: 200904
  6. NEURONTIN [Concomitant]
     Dosage: 200 MG, TID
     Route: 048
     Dates: start: 20110611
  7. THERA TEARS [Concomitant]
     Dosage: 1 GTT, UNK
     Dates: start: 200904
  8. FISH OIL [Concomitant]
     Dosage: 1000 MG, UNK
     Dates: start: 2010
  9. METHOTREXATE [Concomitant]
     Dosage: 7.5 MG, UNK
     Dates: start: 201306
  10. DAILY-VITE [Concomitant]
     Dosage: 1 UNK, QD
     Dates: start: 2010
  11. VITAMIN D3 [Concomitant]
     Dosage: 50000 UNK, UNK
     Dates: start: 2009
  12. TYLENOL                            /00020001/ [Concomitant]
     Dosage: 2 UNK, UNK
     Dates: start: 20131018, end: 20131024
  13. PROVENTIL                          /00139501/ [Concomitant]
     Dosage: 3 ML, EVERY 2 HOURS
     Dates: start: 20130218
  14. CINNAMON                           /01647501/ [Concomitant]
     Dosage: 1000 MG, QD
     Route: 048
  15. ERGOCALCIFEROL [Concomitant]
     Dosage: 50000 UNIT, EVERY 30 DAYS
  16. PRILOSEC                           /00661201/ [Concomitant]
     Dosage: 20 MG, UNK
     Dates: start: 20130409
  17. PHENERGAN                          /00033001/ [Concomitant]
     Dosage: 25 MG, Q6H
  18. ZANTAC [Concomitant]
     Dosage: 150 MG, BID
     Route: 048
  19. ZOFRAN                             /00955301/ [Concomitant]
     Dosage: UNK
  20. PROTONIX [Concomitant]
     Dosage: 20 MG, QD
     Route: 048
  21. LOVENOX [Concomitant]
     Indication: THROMBOSIS PROPHYLAXIS
     Dosage: UNK

REACTIONS (1)
  - Conversion disorder [Not Recovered/Not Resolved]
